FAERS Safety Report 21610386 (Version 2)
Quarter: 2023Q1

REPORT INFORMATION
  Report Type: Spontaneous
  Country: JP (occurrence: JP)
  Receive Date: 20221117
  Receipt Date: 20230216
  Transmission Date: 20230417
  Serious: Yes (Death, Hospitalization, Other)
  Sender: FDA-Public Use
  Company Number: JP-ONO-2022JP031013

PATIENT

DRUGS (3)
  1. OPDIVO [Suspect]
     Active Substance: NIVOLUMAB
     Indication: Gastric cancer
     Dosage: UNK
     Route: 041
  2. GIMERACIL\OTERACIL\TEGAFUR [Concomitant]
     Active Substance: GIMERACIL\OTERACIL\TEGAFUR
     Indication: Gastric cancer
     Dosage: UNK
  3. OXALIPLATIN [Concomitant]
     Active Substance: OXALIPLATIN
     Indication: Gastric cancer
     Dosage: UNK

REACTIONS (2)
  - Liver disorder [Not Recovered/Not Resolved]
  - Pneumonia [Fatal]
